FAERS Safety Report 14956516 (Version 1)
Quarter: 2018Q2

REPORT INFORMATION
  Report Type: Spontaneous
  Country: US (occurrence: US)
  Receive Date: 20180531
  Receipt Date: 20180531
  Transmission Date: 20180711
  Serious: No
  Sender: FDA-Public Use
  Company Number: US-PFIZER INC-2018221232

PATIENT
  Age: 60 Year
  Sex: Female

DRUGS (3)
  1. LYRICA [Concomitant]
     Active Substance: PREGABALIN
     Indication: FIBROMYALGIA
     Dosage: UNK
     Dates: start: 201702
  2. CHANTIX [Suspect]
     Active Substance: VARENICLINE TARTRATE
     Indication: SMOKING CESSATION THERAPY
     Dosage: 1 DF, 2X/DAY
     Route: 048
     Dates: start: 201712
  3. MEVACOR [Concomitant]
     Active Substance: LOVASTATIN
     Indication: HYPERLIPIDAEMIA
     Dosage: UNK
     Dates: start: 201708

REACTIONS (2)
  - Abdominal discomfort [Unknown]
  - Drug hypersensitivity [Unknown]

NARRATIVE: CASE EVENT DATE: 20171208
